FAERS Safety Report 6298859-9 (Version None)
Quarter: 2009Q3

REPORT INFORMATION
  Report Type: 
  Country: None (occurrence: None)
  Receive Date: 20090803
  Receipt Date: 20081201
  Transmission Date: 20100115
  Serious: Yes (Other)
  Sender: FDA-Public Use
  Company Number: 2008-187788-NL

PATIENT
  Sex: Female

DRUGS (7)
  1. REMERON [Suspect]
  2. GEODON [Suspect]
  3. ZOLOFT [Suspect]
  4. LITHIUM [Suspect]
  5. PAXIL [Suspect]
  6. WELLBUTRIN [Suspect]
  7. CLONAZEPAM [Suspect]

REACTIONS (1)
  - SUICIDAL IDEATION [None]
